FAERS Safety Report 19749169 (Version 1)
Quarter: 2021Q3

REPORT INFORMATION
  Report Type: Spontaneous
  Country: US (occurrence: US)
  Receive Date: 20210825
  Receipt Date: 20210825
  Transmission Date: 20211014
  Serious: Yes (Other)
  Sender: FDA-Public Use
  Company Number: None

PATIENT
  Age: 26 Year
  Sex: Female

DRUGS (1)
  1. HUMIRA [Suspect]
     Active Substance: ADALIMUMAB
     Indication: HIDRADENITIS
     Dosage: ?          OTHER FREQUENCY:WEEKLY;?
     Route: 058
     Dates: start: 20210203, end: 20210216

REACTIONS (5)
  - Head injury [None]
  - Product use issue [None]
  - Dizziness [None]
  - Paraesthesia [None]
  - Loss of consciousness [None]

NARRATIVE: CASE EVENT DATE: 20210729
